FAERS Safety Report 7593402-6 (Version None)
Quarter: 2011Q3

REPORT INFORMATION
  Report Type: 
  Country: None (occurrence: None)
  Receive Date: 20110706
  Receipt Date: 20110628
  Transmission Date: 20111222
  Serious: Yes (Hospitalization)
  Sender: FDA-Public Use
  Company Number: US-MERCK-1009USA05575

PATIENT
  Age: 74 Year
  Sex: Female
  Weight: 58 kg

DRUGS (12)
  1. ACTONEL [Suspect]
     Route: 065
     Dates: start: 20100501
  2. VITAMINS (UNSPECIFIED) [Concomitant]
     Route: 065
     Dates: start: 19950101
  3. FOSAMAX [Suspect]
     Indication: OSTEOPOROSIS
     Route: 048
     Dates: start: 19950101
  4. FOSAMAX [Suspect]
     Route: 048
     Dates: end: 20021201
  5. ALENDRONATE SODIUM [Suspect]
     Indication: OSTEOPOROSIS
     Route: 048
     Dates: start: 20080501, end: 20091001
  6. CITRICAL [Concomitant]
     Route: 065
     Dates: start: 19950101
  7. FOSAMAX PLUS D [Suspect]
     Indication: OSTEOPOROSIS
     Route: 048
     Dates: start: 20070301, end: 20080401
  8. ACTONEL [Suspect]
     Indication: OSTEOPOROSIS
     Route: 065
     Dates: start: 20020101, end: 20060601
  9. ACTONEL [Suspect]
     Route: 065
     Dates: start: 20020101, end: 20060601
  10. VITAMIN D (UNSPECIFIED) [Concomitant]
     Indication: VITAMIN D DEFICIENCY
     Route: 065
     Dates: start: 19950101
  11. TOPROL-XL [Concomitant]
     Indication: PALPITATIONS
     Route: 065
     Dates: start: 19950101
  12. TOPROL-XL [Concomitant]
     Indication: SUPRAVENTRICULAR EXTRASYSTOLES
     Route: 065
     Dates: start: 19950101

REACTIONS (11)
  - PULMONARY EMBOLISM [None]
  - HUMERUS FRACTURE [None]
  - ULNA FRACTURE [None]
  - PLEURAL EFFUSION [None]
  - HYPERTENSION [None]
  - PALPITATIONS [None]
  - FALL [None]
  - VITAMIN D DEFICIENCY [None]
  - RADIUS FRACTURE [None]
  - LUNG NEOPLASM [None]
  - FEMUR FRACTURE [None]
